FAERS Safety Report 8138506 (Version 3)
Quarter: 2014Q1

REPORT INFORMATION
  Report Type: Spontaneous
  Country: US (occurrence: US)
  Receive Date: 20110915
  Receipt Date: 20140226
  Transmission Date: 20141002
  Serious: Yes (Hospitalization, Other)
  Sender: FDA-Public Use
  Company Number: US-ASTRAZENECA-2010SE31401

PATIENT
  Age: 53 Year
  Sex: Female

DRUGS (26)
  1. SYMBICORT PMDI [Suspect]
     Indication: ASTHMA
     Dosage: 160/4.5, 2 SPRAY AT NIGHT AND MORNING
     Route: 055
     Dates: start: 2009
  2. NEXIUM [Suspect]
     Indication: GASTROOESOPHAGEAL REFLUX DISEASE
     Route: 048
     Dates: start: 2009
  3. NEXIUM [Suspect]
     Indication: GASTROOESOPHAGEAL REFLUX DISEASE
     Route: 048
  4. LISINOPRIL HCTZ [Suspect]
     Dosage: 20/12.5 EVERY MORNING
     Route: 048
  5. LISINOPRIL [Suspect]
     Route: 048
  6. CRESTOR [Suspect]
     Indication: HYPERCHOLESTEROLAEMIA
     Route: 048
     Dates: start: 2006
  7. CRESTOR [Suspect]
     Indication: HYPERLIPIDAEMIA
     Route: 048
     Dates: start: 2006
  8. ALPRAZOLM [Concomitant]
     Dosage: 0.5 THREE TIMES A DAY
  9. MIACALCIN [Concomitant]
     Dosage: SPRAY DAILY
  10. WELCHOL [Concomitant]
  11. CYCLOBENZAPR [Concomitant]
  12. VIT D [Concomitant]
     Dosage: 50000 UNIT DAILY
  13. OGESTREL [Concomitant]
     Dosage: DAILY
  14. ETODOLAC [Concomitant]
  15. FLUOXETINE [Concomitant]
  16. FUROSEMIDE [Concomitant]
  17. GABAPENTIN [Concomitant]
  18. IBUPROFEN [Concomitant]
  19. MECLIZINE [Concomitant]
  20. SKELAXIN [Concomitant]
  21. PATANASE [Concomitant]
     Dosage: 0.6 / SPRAY DAILY
  22. ZEGERID [Concomitant]
  23. FASTIN [Concomitant]
  24. KLO-CON [Concomitant]
  25. PRO AIR [Concomitant]
     Dosage: 4 SPRAYS DAILY
  26. TEMAZEPAM [Concomitant]

REACTIONS (9)
  - Myocardial infarction [Unknown]
  - Heart injury [Unknown]
  - Asthma [Unknown]
  - Malaise [Not Recovered/Not Resolved]
  - Asthenia [Unknown]
  - Adverse event [Unknown]
  - Off label use [Not Recovered/Not Resolved]
  - Intentional drug misuse [Not Recovered/Not Resolved]
  - Drug dose omission [Not Recovered/Not Resolved]
